FAERS Safety Report 23119099 (Version 1)
Quarter: 2023Q4

REPORT INFORMATION
  Report Type: Report from Study
  Country: PR (occurrence: PR)
  Receive Date: 20231028
  Receipt Date: 20231028
  Transmission Date: 20240109
  Serious: Yes (Hospitalization)
  Sender: FDA-Public Use
  Company Number: PR-ABBVIE-5470091

PATIENT
  Sex: Male
  Weight: 101 kg

DRUGS (13)
  1. VENCLEXTA [Suspect]
     Active Substance: VENETOCLAX
     Indication: Chronic lymphocytic leukaemia
     Route: 048
     Dates: start: 20230103
  2. FENOFIBRATE [Concomitant]
     Active Substance: FENOFIBRATE
     Indication: Product used for unknown indication
     Dosage: FORM STRENGTH: 160MILLIGRAM,?START DATE TEXT: UNKNOWN
  3. METFORMIN HYDROCHLORIDE [Concomitant]
     Active Substance: METFORMIN HYDROCHLORIDE
     Indication: Product used for unknown indication
     Dosage: FORM STRENGTH: 850MILLIGRAM,?START DATE TEXT: UNKNOWN
  4. LEVETIRACETAM [Concomitant]
     Active Substance: LEVETIRACETAM
     Indication: Product used for unknown indication
     Dosage: FORM STRENGTH: 750MILLIGRAM,?START DATE TEXT: UNKNOWN,?(KEPPRA)
  5. CARTIA XT [Concomitant]
     Active Substance: DILTIAZEM HYDROCHLORIDE
     Indication: Product used for unknown indication
     Dosage: FORM STRENGTH: 240MILLIGRAM,?START DATE TEXT: UNKNOWN
  6. PANTOPRAZOLE SODIUM [Concomitant]
     Active Substance: PANTOPRAZOLE SODIUM
     Indication: Product used for unknown indication
     Dosage: FORM STRENGTH: 40MILLIGRAM,?START DATE TEXT: UNKNOWN
  7. FAMOTIDINE [Concomitant]
     Active Substance: FAMOTIDINE
     Indication: Product used for unknown indication
     Dosage: FORM STRENGTH: 40MILLIGRAM,?START DATE TEXT: UNKNOWN
  8. ACETAMINOPHEN [Concomitant]
     Active Substance: ACETAMINOPHEN
     Indication: Product used for unknown indication
     Dosage: FORM STRENGTH: 500MILLIGRAM,?START DATE TEXT: UNKNOWN
  9. LISINOPRIL [Concomitant]
     Active Substance: LISINOPRIL
     Indication: Product used for unknown indication
     Dosage: FORM STRENGTH: 40MILLIGRAM,?START DATE TEXT: UNKNOWN
  10. TRADJENTA [Concomitant]
     Active Substance: LINAGLIPTIN
     Indication: Product used for unknown indication
     Dosage: FORM STRENGTH: 5MILLIGRAM,?START DATE TEXT: UNKNOWN
  11. ALBUTEROL SULFATE [Concomitant]
     Active Substance: ALBUTEROL SULFATE
     Indication: Product used for unknown indication
     Dosage: FORM STRENGTH: 4MILLIGRAM,?START DATE TEXT: UNKNOWN
  12. ATIVAN [Concomitant]
     Active Substance: LORAZEPAM
     Indication: Product used for unknown indication
     Dosage: FORM STRENGTH: 5MILLIGRAM,?START DATE TEXT: UNKNOWN
  13. ATORVASTATIN CALCIUM [Concomitant]
     Active Substance: ATORVASTATIN CALCIUM
     Indication: Product used for unknown indication
     Dosage: FORM STRENGTH: 20MILLIGRAM,?START DATE TEXT: UNKNOWN

REACTIONS (2)
  - Seizure [Not Recovered/Not Resolved]
  - Respiratory distress [Not Recovered/Not Resolved]

NARRATIVE: CASE EVENT DATE: 20231023
